FAERS Safety Report 25418128 (Version 1)
Quarter: 2025Q2

REPORT INFORMATION
  Report Type: Spontaneous
  Country: US (occurrence: None)
  Receive Date: 20250609
  Receipt Date: 20250609
  Transmission Date: 20250716
  Serious: No
  Sender: FDA-CTU
  Company Number: None

PATIENT
  Age: 66 Year
  Sex: Female
  Weight: 122 kg

DRUGS (1)
  1. FOSAPREPITANT [Suspect]
     Active Substance: FOSAPREPITANT
     Route: 041
     Dates: start: 20250603, end: 20250603

REACTIONS (2)
  - Chest discomfort [None]
  - Flushing [None]

NARRATIVE: CASE EVENT DATE: 20250603
